FAERS Safety Report 24090068 (Version 1)
Quarter: 2024Q3

REPORT INFORMATION
  Report Type: Spontaneous
  Country: US (occurrence: US)
  Receive Date: 20240715
  Receipt Date: 20240715
  Transmission Date: 20241016
  Serious: Yes (Hospitalization)
  Sender: ACCORD
  Company Number: US-MLMSERVICE-20240626-PI113039-00200-1

PATIENT
  Age: 61 Year
  Sex: Male

DRUGS (1)
  1. LEVOTHYROXINE [Suspect]
     Active Substance: LEVOTHYROXINE\LEVOTHYROXINE SODIUM
     Indication: Product used for unknown indication

REACTIONS (4)
  - Coronary artery dilatation [Unknown]
  - Overdose [Unknown]
  - Acute myocardial infarction [Unknown]
  - Coronary artery occlusion [Unknown]
